FAERS Safety Report 8802620 (Version 2)
Quarter: 2015Q3

REPORT INFORMATION
  Report Type: Report from Study
  Country: US (occurrence: US)
  Receive Date: 20120921
  Receipt Date: 20150811
  Transmission Date: 20151125
  Serious: Yes (Death)
  Sender: FDA-Public Use
  Company Number: US-ROCHE-1103808

PATIENT
  Age: 76 Year
  Sex: Female
  Weight: 84.54 kg

DRUGS (7)
  1. CIPRO [Concomitant]
     Active Substance: CIPROFLOXACIN HYDROCHLORIDE
     Dosage: FOR 14 DAYS
     Route: 065
  2. SODIUM CHLORIDE I.V. [Concomitant]
     Route: 042
  3. DACARBAZINE. [Concomitant]
     Active Substance: DACARBAZINE
     Route: 042
  4. PALONOSETRON HCL [Concomitant]
     Active Substance: PALONOSETRON HYDROCHLORIDE
     Route: 042
  5. DEXAMETHASONE SODIUM PHOSPHATE. [Concomitant]
     Active Substance: DEXAMETHASONE SODIUM PHOSPHATE
     Route: 042
  6. AVASTIN [Suspect]
     Active Substance: BEVACIZUMAB
     Indication: SOFT TISSUE SARCOMA
     Dosage: RECEIVED ON 03/JUN/2008, 17/JUN/2008, 08/JUL/2008, 16/JUL/2008, 23/JUL/2008, 06/AUG/2008, 13/AUG/200
     Route: 042
     Dates: start: 20080520
  7. DEXAMETHASONE SODIUM PHOSPHATE. [Concomitant]
     Active Substance: DEXAMETHASONE SODIUM PHOSPHATE
     Route: 042

REACTIONS (7)
  - Back pain [Unknown]
  - Arthralgia [Unknown]
  - Death [Fatal]
  - Pruritus [Unknown]
  - Diarrhoea [Unknown]
  - Burning sensation [Unknown]
  - Skin ulcer [Unknown]

NARRATIVE: CASE EVENT DATE: 20100220
